FAERS Safety Report 9931931 (Version 2)
Quarter: 2014Q1

REPORT INFORMATION
  Report Type: Report from Study
  Country: GB (occurrence: GB)
  Receive Date: 20140228
  Receipt Date: 20140327
  Transmission Date: 20141002
  Serious: Yes (Death, Other)
  Sender: FDA-Public Use
  Company Number: GB-AMGEN-GBRCT2014014096

PATIENT
  Age: 64 Year
  Sex: Female
  Weight: 88 kg

DRUGS (2)
  1. ETANERCEPT [Suspect]
     Indication: RHEUMATOID ARTHRITIS
     Dosage: 25 MG, 2 TIMES/WK
     Route: 065
     Dates: start: 20041115
  2. METHOTREXATE [Concomitant]
     Dosage: UNK

REACTIONS (3)
  - Colon cancer [Fatal]
  - Myocardial ischaemia [Fatal]
  - Cardiac failure [Fatal]
